FAERS Safety Report 25094199 (Version 2)
Quarter: 2025Q1

REPORT INFORMATION
  Report Type: Report from Study
  Country: BE (occurrence: BE)
  Receive Date: 20250319
  Receipt Date: 20250324
  Transmission Date: 20250409
  Serious: Yes (Life-Threatening, Hospitalization)
  Sender: PFIZER
  Company Number: BE-STADA-01360320

PATIENT
  Age: 7 Month
  Sex: Male

DRUGS (3)
  1. METHOTREXATE SODIUM [Suspect]
     Active Substance: METHOTREXATE SODIUM
     Indication: Infantile fibromatosis
     Route: 042
  2. DASATINIB [Suspect]
     Active Substance: DASATINIB
     Indication: Infantile fibromatosis
     Dosage: 60 MG/M2, 1X/DAY ATT DAY 135 OF LIFE
     Route: 048
  3. VINBLASTINE [Suspect]
     Active Substance: VINBLASTINE
     Indication: Infantile fibromatosis
     Route: 042

REACTIONS (1)
  - Pulmonary hypertension [Recovered/Resolved]
